FAERS Safety Report 11284757 (Version 2)
Quarter: 2015Q3

REPORT INFORMATION
  Report Type: Spontaneous
  Country: US (occurrence: US)
  Receive Date: 20150720
  Receipt Date: 20150720
  Transmission Date: 20151125
  Serious: No
  Sender: FDA-Public Use
  Company Number: CHPA2015US008626

PATIENT
  Age: 68 Year
  Sex: Female

DRUGS (3)
  1. VOLTAREN [Suspect]
     Active Substance: DICLOFENAC SODIUM
     Indication: OSTEOARTHRITIS
     Dosage: 4 G, TID
     Route: 065
     Dates: start: 201505, end: 201506
  2. NABUMETONE SANDOZ [Suspect]
     Active Substance: NABUMETONE
     Indication: OSTEOARTHRITIS
     Dosage: 1 DF, BID
     Route: 065
     Dates: start: 2015
  3. VOLTAREN [Suspect]
     Active Substance: DICLOFENAC SODIUM
     Indication: CONCOMITANT DISEASE AGGRAVATED
     Dosage: 4 G, TID
     Route: 065
     Dates: start: 20150717

REACTIONS (3)
  - Inappropriate schedule of drug administration [Unknown]
  - Concomitant disease aggravated [Not Recovered/Not Resolved]
  - Product use issue [Unknown]

NARRATIVE: CASE EVENT DATE: 201505
